FAERS Safety Report 4838063-1 (Version None)
Quarter: 2005Q4

REPORT INFORMATION
  Report Type: 
  Country: None (occurrence: None)
  Receive Date: 20051128
  Receipt Date: 20051118
  Transmission Date: 20060501
  Serious: Yes (Hospitalization)
  Sender: FDA-Public Use
  Company Number: GB-ABBOTT-05P-167-0317716-00

PATIENT
  Age: 51 Year
  Sex: Male

DRUGS (7)
  1. EPILIM [Suspect]
     Indication: MOOD ALTERED
     Route: 065
     Dates: start: 20030203
  2. CLOZAPINE [Suspect]
     Indication: MANIA
     Route: 048
     Dates: start: 20040729, end: 20051009
  3. ORPHENADRINE [Concomitant]
     Indication: EXTRAPYRAMIDAL DISORDER
     Route: 065
     Dates: start: 20030203
  4. PROPRANOLOL [Concomitant]
     Indication: ANXIETY
     Route: 065
     Dates: start: 20030203
  5. SENNA [Concomitant]
     Indication: CONSTIPATION
     Route: 065
     Dates: start: 20030203
  6. LAMOTRIGINE [Concomitant]
     Indication: MOOD ALTERED
     Route: 065
     Dates: start: 20030303
  7. ASPIRIN [Concomitant]
     Indication: PROPHYLAXIS
     Route: 065

REACTIONS (1)
  - RENAL FAILURE ACUTE [None]
